FAERS Safety Report 7656130-4 (Version None)
Quarter: 2011Q3

REPORT INFORMATION
  Report Type: 
  Country: None (occurrence: None)
  Receive Date: 20110804
  Receipt Date: 20110715
  Transmission Date: 20111222
  Serious: No
  Sender: FDA-Public Use
  Company Number: US-B.I. PHARMACEUTICALS,INC./RIDGEFIELD-2011-BP-14445BP

PATIENT
  Sex: Female

DRUGS (10)
  1. VITAMIN A [Concomitant]
  2. SYNTHROID [Concomitant]
  3. MULTI-VITAMIN [Concomitant]
  4. TRADJENTA [Suspect]
     Indication: TYPE 2 DIABETES MELLITUS
     Dosage: 5 MG
     Route: 048
  5. SINGULAIR [Concomitant]
     Dosage: 10 MG
  6. VITAMIN E [Concomitant]
  7. BYETTA [Concomitant]
     Dosage: 10 MG
  8. NEXIUM [Concomitant]
     Dosage: 80 MG
  9. METFORMIN HCL [Concomitant]
  10. SYNTHROID [Concomitant]

REACTIONS (1)
  - RASH [None]
